FAERS Safety Report 8960621 (Version 1)
Quarter: 2012Q4

REPORT INFORMATION
  Report Type: Spontaneous
  Country: US (occurrence: None)
  Receive Date: 20121207
  Receipt Date: 20121207
  Transmission Date: 20130627
  Serious: Yes (Other)
  Sender: FDA-Public Use
  Company Number: None

PATIENT
  Sex: Female

DRUGS (7)
  1. JAKAFI [Suspect]
     Indication: ESSENTIAL THROMBOCYTHEMIA
     Route: 048
     Dates: start: 20120917, end: 201211
  2. MVI [Concomitant]
  3. SIMVASTATIN [Concomitant]
  4. PLAVIX [Concomitant]
  5. METOPROLOL [Concomitant]
  6. FISH OIL [Concomitant]
  7. FUROSEMIDE [Concomitant]

REACTIONS (4)
  - Eye infection [None]
  - No therapeutic response [None]
  - Corneal disorder [None]
  - Vision blurred [None]
